FAERS Safety Report 4570314-3 (Version None)
Quarter: 2005Q1

REPORT INFORMATION
  Report Type: 
  Country: None (occurrence: None)
  Receive Date: 20050127
  Receipt Date: 20050127
  Transmission Date: 20050727
  Serious: Yes (Hospitalization)
  Sender: FDA-Public Use
  Company Number: None

PATIENT
  Age: 44 Year
  Sex: Male
  Weight: 74.1 kg

DRUGS (3)
  1. RISPERIDONE [Suspect]
     Indication: SCHIZOPHRENIA, PARANOID TYPE
     Dosage: 8MG DAILY ORAL
     Route: 048
  2. AMANTADINE [Concomitant]
  3. DICLOFENAC [Concomitant]

REACTIONS (7)
  - AGGRESSION [None]
  - CONDITION AGGRAVATED [None]
  - HALLUCINATION, AUDITORY [None]
  - INJURY [None]
  - MENTAL STATUS CHANGES [None]
  - RENAL FAILURE ACUTE [None]
  - RHABDOMYOLYSIS [None]
